FAERS Safety Report 7391573-8 (Version None)
Quarter: 2011Q2

REPORT INFORMATION
  Report Type: 
  Country: None (occurrence: None)
  Receive Date: 20110404
  Receipt Date: 20110322
  Transmission Date: 20111010
  Serious: Yes (Other)
  Sender: FDA-Public Use
  Company Number: PHHY2011US23872

PATIENT
  Age: 78 Year
  Sex: Female

DRUGS (1)
  1. DIOVAN [Suspect]
     Dosage: 160 MG,

REACTIONS (7)
  - SYNCOPE [None]
  - RENAL FAILURE [None]
  - MALAISE [None]
  - HYPERSENSITIVITY [None]
  - HALLUCINATION [None]
  - HYPOTENSION [None]
  - OEDEMA [None]
